FAERS Safety Report 7051102-5 (Version None)
Quarter: 2010Q4

REPORT INFORMATION
  Report Type: 
  Country: None (occurrence: None)
  Receive Date: 20101019
  Receipt Date: 20101007
  Transmission Date: 20110411
  Serious: Yes (Hospitalization)
  Sender: FDA-Public Use
  Company Number: US-JNJFOC-20100908032

PATIENT
  Sex: Female
  Weight: 48.1 kg

DRUGS (6)
  1. REMICADE [Suspect]
     Indication: CROHN'S DISEASE
     Route: 042
  2. REMICADE [Suspect]
     Route: 042
  3. INSULIN [Concomitant]
     Indication: DIABETES MELLITUS
  4. PREVACID [Concomitant]
     Route: 048
  5. ADVIL [Concomitant]
     Indication: BACK PAIN
  6. ALEVE (CAPLET) [Concomitant]
     Indication: BACK PAIN

REACTIONS (1)
  - PELVIC VENOUS THROMBOSIS [None]
